FAERS Safety Report 5011021-2 (Version None)
Quarter: 2006Q2

REPORT INFORMATION
  Report Type: 
  Country: None (occurrence: None)
  Receive Date: 20060523
  Receipt Date: 20060515
  Transmission Date: 20061013
  Serious: Yes (Hospitalization, Other)
  Sender: FDA-Public Use
  Company Number: 2006-01153

PATIENT
  Age: 59 Year
  Sex: Male

DRUGS (2)
  1. VELCADE [Suspect]
     Indication: MULTIPLE MYELOMA
     Dosage: 2.40 MG, INTRAVENOUS
     Route: 042
     Dates: start: 20060425
  2. CYCLOPHOSPHAMIDE [Suspect]
     Indication: MULTIPLE MYELOMA
     Dosage: 2800.00 MG, INTRAVENOUS
     Route: 042
     Dates: start: 20060425

REACTIONS (3)
  - LEUKOPENIA [None]
  - THROMBOCYTOPENIA [None]
  - URETHRAL HAEMORRHAGE [None]
